FAERS Safety Report 12703454 (Version 1)
Quarter: 2016Q3

REPORT INFORMATION
  Report Type: Spontaneous
  Country: CN (occurrence: CN)
  Receive Date: 20160831
  Receipt Date: 20160831
  Transmission Date: 20161109
  Serious: Yes (Other)
  Sender: FDA-Public Use
  Company Number: CN-JNJFOC-20160819189

PATIENT

DRUGS (1)
  1. FENTANYL TRANSDERMAL SYSTEM [Suspect]
     Active Substance: FENTANYL
     Indication: ANALGESIC THERAPY
     Route: 062

REACTIONS (7)
  - Loss of consciousness [Unknown]
  - Mental disorder [Unknown]
  - Application site pain [Unknown]
  - Seizure [Unknown]
  - Vomiting [Unknown]
  - Application site rash [Unknown]
  - Hyperhidrosis [Unknown]
